FAERS Safety Report 7523361-3 (Version None)
Quarter: 2011Q2

REPORT INFORMATION
  Report Type: 
  Country: None (occurrence: None)
  Receive Date: 20110603
  Receipt Date: 20110525
  Transmission Date: 20111010
  Serious: Yes (Hospitalization)
  Sender: FDA-Public Use
  Company Number: A0930106A

PATIENT
  Sex: Female
  Weight: 12 kg

DRUGS (3)
  1. SERETIDE [Suspect]
     Indication: ASTHMA
     Dosage: 1PUFF TWICE PER DAY
     Route: 055
     Dates: start: 20110516
  2. BUSONID [Suspect]
     Dosage: 1PUFF TWICE PER DAY
     Route: 045
     Dates: start: 20110516
  3. NO CONCURRENT MEDICATION [Concomitant]

REACTIONS (2)
  - DECREASED APPETITE [None]
  - VOMITING [None]
